FAERS Safety Report 9355489 (Version 1)
Quarter: 2013Q2

REPORT INFORMATION
  Report Type: Spontaneous
  Country: US (occurrence: US)
  Receive Date: 20130619
  Receipt Date: 20130619
  Transmission Date: 20140414
  Serious: Yes (Hospitalization)
  Sender: FDA-Public Use
  Company Number: US-BAYER-2013-075337

PATIENT
  Age: 48 Year
  Sex: Female
  Weight: 75.28 kg

DRUGS (3)
  1. YAZ [Suspect]
  2. CALCIUM [Concomitant]
  3. MULTIVITAMIN [Concomitant]

REACTIONS (2)
  - Pulmonary embolism [None]
  - Deep vein thrombosis [None]
